FAERS Safety Report 4901928-6 (Version None)
Quarter: 2006Q1

REPORT INFORMATION
  Report Type: 
  Country: None (occurrence: None)
  Receive Date: 20060203
  Receipt Date: 20060203
  Transmission Date: 20060701
  Serious: Yes (Hospitalization)
  Sender: FDA-Public Use
  Company Number: None

PATIENT
  Age: 14 Year
  Sex: Male
  Weight: 59.5 kg

DRUGS (2)
  1. IMMUNE GLOBULIN INTRAVENOUS (HUMAN) [Suspect]
     Indication: IDIOPATHIC THROMBOCYTOPENIC PURPURA
     Dosage: 0.8 MG/KG X2 IV
     Route: 042
     Dates: start: 20051118, end: 20051119
  2. IMMUNE GLOBULIN INTRAVENOUS (HUMAN) [Suspect]

REACTIONS (1)
  - MENINGITIS ASEPTIC [None]
